FAERS Safety Report 5085263-4 (Version None)
Quarter: 2006Q3

REPORT INFORMATION
  Report Type: 
  Country: None (occurrence: None)
  Receive Date: 20060816
  Receipt Date: 20060725
  Transmission Date: 20061208
  Serious: Yes (Other)
  Sender: FDA-Public Use
  Company Number: MAG-2006-0000474

PATIENT
  Age: 74 Year
  Sex: Female

DRUGS (8)
  1. OXYCODONE HCL [Suspect]
     Indication: CANCER PAIN
     Dosage: SEE IMAGE
     Route: 048
     Dates: start: 20051012, end: 20051228
  2. MORPHINE SULFATE [Suspect]
     Indication: CANCER PAIN
     Dosage: 20 MG, DAILY
  3. PAXIL [Suspect]
     Indication: DEPRESSIVE SYMPTOM
     Dosage: SEE IMAGE
     Route: 048
     Dates: start: 20051024, end: 20051101
  4. PAXIL [Suspect]
     Indication: DEPRESSIVE SYMPTOM
     Dosage: SEE IMAGE
     Route: 048
     Dates: start: 20051102, end: 20051228
  5. CODEINE PHOSPHATE [Concomitant]
  6. FENTANYL [Concomitant]
  7. ALPRAZOLAM [Concomitant]
  8. DEPAS (ETIZOLAM) [Concomitant]

REACTIONS (10)
  - ABNORMAL BEHAVIOUR [None]
  - AMNESIA [None]
  - DEPRESSED LEVEL OF CONSCIOUSNESS [None]
  - DEPRESSIVE SYMPTOM [None]
  - DRUG INTERACTION [None]
  - HYPERSOMNIA [None]
  - NAUSEA [None]
  - PSYCHOTIC DISORDER [None]
  - SEROTONIN SYNDROME [None]
  - SOMNOLENCE [None]
